FAERS Safety Report 5700925-0 (Version None)
Quarter: 2008Q2

REPORT INFORMATION
  Report Type: 
  Country: None (occurrence: None)
  Receive Date: 20080410
  Receipt Date: 20080404
  Transmission Date: 20081010
  Serious: Yes (Hospitalization)
  Sender: FDA-Public Use
  Company Number: B0513611A

PATIENT
  Age: 86 Year
  Sex: Female
  Weight: 55 kg

DRUGS (9)
  1. VALTREX [Suspect]
     Indication: HERPES ZOSTER
     Dosage: 1000MG THREE TIMES PER DAY
     Route: 048
     Dates: start: 20080312, end: 20080316
  2. FAMOTIDINE [Concomitant]
     Indication: GASTRIC ULCER
     Dosage: 20MG PER DAY
     Route: 048
  3. MARZULENE [Concomitant]
     Indication: GASTRIC ULCER
     Dosage: 1.89MG PER DAY
     Route: 048
  4. MERISLON [Concomitant]
     Indication: DIZZINESS
     Dosage: 18MG PER DAY
     Route: 048
     Dates: end: 20080318
  5. PANALDINE [Concomitant]
     Indication: CEREBRAL INFARCTION
     Dosage: 100MG PER DAY
     Route: 048
  6. FRANDOL S [Concomitant]
     Indication: CARDIAC VALVE DISEASE
     Route: 048
  7. LOXONIN [Concomitant]
     Indication: HERPES ZOSTER
     Dosage: 180MG PER DAY
     Route: 048
     Dates: start: 20080312, end: 20080313
  8. MUCOSTA [Concomitant]
     Indication: HERPES ZOSTER
     Route: 048
     Dates: start: 20080312, end: 20080313
  9. GLYSENNID [Concomitant]
     Indication: CONSTIPATION
     Dosage: 12MG PER DAY
     Route: 048

REACTIONS (7)
  - BLOOD CREATININE INCREASED [None]
  - BLOOD UREA INCREASED [None]
  - DYSARTHRIA [None]
  - NERVOUS SYSTEM DISORDER [None]
  - RENAL IMPAIRMENT [None]
  - RESTLESSNESS [None]
  - SOMNOLENCE [None]
